FAERS Safety Report 11656105 (Version 1)
Quarter: 2015Q4

REPORT INFORMATION
  Report Type: Spontaneous
  Country: GB (occurrence: GB)
  Receive Date: 20151023
  Receipt Date: 20151023
  Transmission Date: 20160304
  Serious: Yes (Disabling, Other)
  Sender: FDA-Public Use
  Company Number: GB-PFIZER INC-2015353224

PATIENT
  Age: 37 Year
  Sex: Female
  Weight: 47.63 kg

DRUGS (3)
  1. MEBEVERINE [Concomitant]
     Active Substance: MEBEVERINE
  2. EFEXOR XL [Suspect]
     Active Substance: VENLAFAXINE HYDROCHLORIDE
     Indication: DEPRESSION
     Dosage: 175 MG, UNK
     Route: 048
     Dates: start: 20070101, end: 20070201
  3. DIAZEPAM. [Concomitant]
     Active Substance: DIAZEPAM
     Dosage: UNK

REACTIONS (10)
  - Malaise [Not Recovered/Not Resolved]
  - Fear [Unknown]
  - Drug withdrawal syndrome [Unknown]
  - Suicidal ideation [Not Recovered/Not Resolved]
  - Abdominal pain upper [Not Recovered/Not Resolved]
  - Major depression [Not Recovered/Not Resolved]
  - Nausea [Not Recovered/Not Resolved]
  - Anger [Unknown]
  - Feeling abnormal [Not Recovered/Not Resolved]
  - Social avoidant behaviour [Not Recovered/Not Resolved]

NARRATIVE: CASE EVENT DATE: 20070101
